FAERS Safety Report 6354707-X (Version None)
Quarter: 2009Q3

REPORT INFORMATION
  Report Type: 
  Country: None (occurrence: None)
  Receive Date: 20090914
  Receipt Date: 20090908
  Transmission Date: 20100115
  Serious: Yes (Hospitalization)
  Sender: FDA-Public Use
  Company Number: US-ELI_LILLY_AND_COMPANY-US200909001838

PATIENT
  Sex: Female

DRUGS (8)
  1. HUMALOG [Suspect]
     Indication: TYPE 2 DIABETES MELLITUS
     Dosage: UNK, AS NEEDED
  2. LANTUS [Concomitant]
     Dosage: 30 U, EACH EVENING
  3. FUROSEMIDE [Concomitant]
  4. COREG [Concomitant]
  5. KLOR-CON [Concomitant]
  6. MAGNESIUM OXIDE [Concomitant]
  7. NEXIUM [Concomitant]
  8. ZAROXOLYN [Concomitant]

REACTIONS (6)
  - BLOOD CHOLESTEROL INCREASED [None]
  - BLOOD GLUCOSE INCREASED [None]
  - CARDIAC FAILURE CONGESTIVE [None]
  - INJECTION SITE PAIN [None]
  - PNEUMONIA [None]
  - VISION BLURRED [None]
